FAERS Safety Report 24679274 (Version 1)
Quarter: 2024Q4

REPORT INFORMATION
  Report Type: Spontaneous
  Country: IT (occurrence: IT)
  Receive Date: 20241129
  Receipt Date: 20241129
  Transmission Date: 20250115
  Serious: Yes (Other)
  Sender: RANBAXY
  Company Number: IT-MINISAL02-1007676

PATIENT
  Age: 75 Year
  Sex: Female
  Weight: 100 kg

DRUGS (2)
  1. GEMCITABINE [Suspect]
     Active Substance: GEMCITABINE
     Indication: Transitional cell carcinoma
     Dosage: CARBOPLATIN ON DAY 1 + GEMCITABINE ON DAY 1 + 8 OF 21-DAY CYCLES 1ST CYCLE: 20,000 MG OF GEMCITABINE
     Route: 040
     Dates: start: 20240118, end: 202404
  2. CARBOPLATIN [Suspect]
     Active Substance: CARBOPLATIN
     Indication: Transitional cell carcinoma
     Dosage: CARBOPLATIN ON DAY 1 + GEMCITABINE ON DAY 1 + 8 OF 21-DAY CYCLES 1ST CYCLE: 360 MG OF CARBO 2ND CYCL
     Route: 040
     Dates: start: 20240118, end: 202404

REACTIONS (2)
  - Thrombocytopenia [Recovered/Resolved]
  - Neutropenia [Recovered/Resolved]

NARRATIVE: CASE EVENT DATE: 20240201
